FAERS Safety Report 12654338 (Version 1)
Quarter: 2016Q3

REPORT INFORMATION
  Report Type: Spontaneous
  Country: US (occurrence: None)
  Receive Date: 20160815
  Receipt Date: 20160815
  Transmission Date: 20161109
  Serious: Yes (Life-Threatening)
  Sender: FDA-Public Use
  Company Number: None

PATIENT
  Age: 35 Year
  Sex: Female
  Weight: 124.29 kg

DRUGS (3)
  1. TRAMADOL, 50 MG [Suspect]
     Active Substance: TRAMADOL
     Indication: PAIN
     Route: 048
     Dates: start: 20160614
  2. TRAMADOL, 50 MG [Suspect]
     Active Substance: TRAMADOL
     Indication: ARTHRITIS
     Route: 048
     Dates: start: 20160614
  3. TRAMADOL, 50 MG [Suspect]
     Active Substance: TRAMADOL
     Indication: BACK DISORDER
     Route: 048
     Dates: start: 20160614

REACTIONS (2)
  - Sudden onset of sleep [None]
  - Somnolence [None]

NARRATIVE: CASE EVENT DATE: 20160813
